FAERS Safety Report 23428640 (Version 6)
Quarter: 2024Q3

REPORT INFORMATION
  Report Type: Report from Study
  Country: US (occurrence: US)
  Receive Date: 20240122
  Receipt Date: 20240719
  Transmission Date: 20241017
  Serious: Yes (Other)
  Sender: TAKEDA
  Company Number: US-TAKEDA-2024TUS000287

PATIENT
  Age: 79 Year
  Sex: Female

DRUGS (4)
  1. FRUQUINTINIB [Suspect]
     Active Substance: FRUQUINTINIB
     Indication: Colon cancer
     Dosage: 3 MILLIGRAM, QD
     Route: 048
     Dates: start: 20231228
  2. FRUQUINTINIB [Suspect]
     Active Substance: FRUQUINTINIB
     Dosage: 3 MILLIGRAM, QD
     Route: 048
  3. FRUQUINTINIB [Suspect]
     Active Substance: FRUQUINTINIB
     Dosage: 1 MILLIGRAM, QD
     Route: 048
  4. TRIAMTERENE [Concomitant]
     Active Substance: TRIAMTERENE
     Indication: Blood pressure measurement
     Dosage: UNK
     Route: 065

REACTIONS (36)
  - Ascites [Unknown]
  - Neuropathy peripheral [Not Recovered/Not Resolved]
  - Colon cancer [Unknown]
  - Carcinoembryonic antigen increased [Not Recovered/Not Resolved]
  - Periorbital swelling [Unknown]
  - Urine output decreased [Unknown]
  - Weight increased [Not Recovered/Not Resolved]
  - Blood pressure increased [Unknown]
  - Drug ineffective [Unknown]
  - Food craving [Not Recovered/Not Resolved]
  - Vision blurred [Not Recovered/Not Resolved]
  - Ageusia [Not Recovered/Not Resolved]
  - Nail disorder [Not Recovered/Not Resolved]
  - Cholelithiasis [Not Recovered/Not Resolved]
  - Blood albumin decreased [Not Recovered/Not Resolved]
  - Blood sodium decreased [Not Recovered/Not Resolved]
  - Fatigue [Not Recovered/Not Resolved]
  - Ocular discomfort [Unknown]
  - Contusion [Not Recovered/Not Resolved]
  - Headache [Not Recovered/Not Resolved]
  - Brain fog [Not Recovered/Not Resolved]
  - Feeling hot [Not Recovered/Not Resolved]
  - Balance disorder [Not Recovered/Not Resolved]
  - Red cell distribution width increased [Unknown]
  - Nicotinamide decreased [Unknown]
  - Blood calcium decreased [Unknown]
  - Weight decreased [Unknown]
  - Fall [Recovering/Resolving]
  - Asthenia [Not Recovered/Not Resolved]
  - Blood blister [Unknown]
  - Gait disturbance [Unknown]
  - Constipation [Not Recovered/Not Resolved]
  - Dizziness [Not Recovered/Not Resolved]
  - Oral pain [Unknown]
  - Epistaxis [Recovered/Resolved]
  - Arthralgia [Not Recovered/Not Resolved]

NARRATIVE: CASE EVENT DATE: 20231228
